FAERS Safety Report 19916579 (Version 1)
Quarter: 2021Q4

REPORT INFORMATION
  Report Type: Spontaneous
  Country: US (occurrence: US)
  Receive Date: 20211004
  Receipt Date: 20211004
  Transmission Date: 20220303
  Serious: Yes (Other)
  Sender: FDA-Public Use
  Company Number: None

PATIENT
  Age: 52 Year
  Sex: Female
  Weight: 85.05 kg

DRUGS (8)
  1. TRULICITY [Suspect]
     Active Substance: DULAGLUTIDE
     Indication: Type 2 diabetes mellitus
     Dosage: ?          OTHER FREQUENCY:WEEKLY;
     Route: 058
     Dates: start: 20210811, end: 20210929
  2. insulin glargine 55 units daily [Concomitant]
     Dates: start: 20210929
  3. atorvastatin 40 mg daily [Concomitant]
     Dates: start: 20210811
  4. Tribenzor  40-5-25 mg daily [Concomitant]
     Dates: start: 20210713
  5. acetaminophen 500 mg PRN [Concomitant]
     Dates: start: 20210623
  6. Farxiga 10 mg daily [Concomitant]
     Dates: start: 20210524
  7. Furosemide 20 mg daily [Concomitant]
     Dates: start: 20210322
  8. ASPIRIN [Concomitant]
     Active Substance: ASPIRIN
     Dates: start: 20201202

REACTIONS (4)
  - Nausea [None]
  - Dizziness [None]
  - Motion sickness [None]
  - Condition aggravated [None]

NARRATIVE: CASE EVENT DATE: 20210929
